FAERS Safety Report 21750649 (Version 2)
Quarter: 2023Q1

REPORT INFORMATION
  Report Type: Spontaneous
  Country: US (occurrence: US)
  Receive Date: 20221219
  Receipt Date: 20230105
  Transmission Date: 20230418
  Serious: Yes (Hospitalization, Other)
  Sender: FDA-Public Use
  Company Number: US-GILEAD-2022-0609788

PATIENT
  Age: 72 Year
  Sex: Male

DRUGS (3)
  1. TECARTUS [Suspect]
     Active Substance: BREXUCABTAGENE AUTOLEUCEL
     Indication: Mantle cell lymphoma
     Dosage: UNK
     Route: 065
     Dates: start: 20220412, end: 20220412
  2. MEROPENEM [Concomitant]
     Active Substance: MEROPENEM
     Indication: Body temperature abnormal
     Dosage: UNK, TID
  3. VANCOMYCIN [Concomitant]
     Active Substance: VANCOMYCIN
     Indication: Body temperature abnormal
     Dosage: UNK, BID

REACTIONS (1)
  - Cytokine release syndrome [Recovered/Resolved]

NARRATIVE: CASE EVENT DATE: 20220401
